FAERS Safety Report 14225684 (Version 1)
Quarter: 2017Q4

REPORT INFORMATION
  Report Type: Spontaneous
  Country: US (occurrence: None)
  Receive Date: 20171123
  Receipt Date: 20171123
  Transmission Date: 20180321
  Serious: Yes (Hospitalization)
  Sender: FDA-Public Use
  Company Number: None

PATIENT
  Age: 52 Year
  Sex: Male

DRUGS (1)
  1. DAPOTMYCIN 500MG HOSPIRA [Suspect]
     Active Substance: DAPTOMYCIN
     Indication: SPINAL CORD ABSCESS
     Route: 042
     Dates: start: 20171107, end: 20171114

REACTIONS (2)
  - Rhabdomyolysis [None]
  - Therapy cessation [None]

NARRATIVE: CASE EVENT DATE: 20171114
